FAERS Safety Report 21168472 (Version 1)
Quarter: 2022Q3

REPORT INFORMATION
  Report Type: Report from Study
  Country: US (occurrence: US)
  Receive Date: 20220803
  Receipt Date: 20220803
  Transmission Date: 20221026
  Serious: No
  Sender: FDA-Public Use
  Company Number: US-SUNOVION-2022SUN002179

PATIENT
  Age: 84 Year
  Sex: Male

DRUGS (2)
  1. KYNMOBI [Suspect]
     Active Substance: APOMORPHINE HYDROCHLORIDE
     Indication: Parkinson^s disease
     Dosage: 10 MG
     Route: 060
     Dates: start: 20220718
  2. CARBIDOPA\LEVODOPA [Suspect]
     Active Substance: CARBIDOPA\LEVODOPA
     Indication: Parkinson^s disease
     Dosage: UNKNOWN
     Route: 065

REACTIONS (6)
  - Snoring [Not Recovered/Not Resolved]
  - Abdominal discomfort [Recovered/Resolved]
  - Dysgeusia [Recovered/Resolved]
  - Yawning [Recovered/Resolved]
  - Somnolence [Recovered/Resolved]
  - Blood pressure decreased [Recovered/Resolved]

NARRATIVE: CASE EVENT DATE: 20220718
